FAERS Safety Report 10395142 (Version 1)
Quarter: 2014Q3

REPORT INFORMATION
  Report Type: Spontaneous
  Country: US (occurrence: US)
  Receive Date: 20140820
  Receipt Date: 20140820
  Transmission Date: 20150326
  Serious: Yes (Hospitalization)
  Sender: FDA-Public Use
  Company Number: US-UNITED THERAPEUTICS-UNT-2014-005807

PATIENT
  Age: 77 Year
  Sex: Female
  Weight: 43.54 kg

DRUGS (2)
  1. LETAIRIS [Concomitant]
     Active Substance: AMBRISENTAN
     Indication: PRODUCT USED FOR UNKNOWN INDICATION
  2. TYVASO [Suspect]
     Active Substance: TREPROSTINIL
     Indication: PULMONARY ARTERIAL HYPERTENSION
     Dosage: 18-54 ?G, UNK
     Dates: start: 20110503

REACTIONS (3)
  - Poor venous access [Unknown]
  - Wound infection staphylococcal [Unknown]
  - Wound [Unknown]

NARRATIVE: CASE EVENT DATE: 20140805
